FAERS Safety Report 11898906 (Version 2)
Quarter: 2016Q1

REPORT INFORMATION
  Report Type: Spontaneous
  Country: US (occurrence: US)
  Receive Date: 20160108
  Receipt Date: 20160108
  Transmission Date: 20160526
  Serious: Yes (Other)
  Sender: FDA-Public Use
  Company Number: US-MEDTRONIC-1046288

PATIENT
  Age: 22 Year
  Sex: Male

DRUGS (3)
  1. COMPOUNDED BACLOFEN 2000 MCG/ML [Suspect]
     Active Substance: BACLOFEN
     Indication: MUSCLE SPASTICITY
     Route: 037
  2. BACLOFEN. [Suspect]
     Active Substance: BACLOFEN
     Route: 048
  3. VALIUM [Suspect]
     Active Substance: DIAZEPAM
     Route: 048

REACTIONS (10)
  - Constipation [None]
  - Pain [None]
  - Muscle tightness [None]
  - Hypotonia [None]
  - Nephrolithiasis [None]
  - Muscle spasticity [None]
  - Underdose [None]
  - No therapeutic response [Unknown]
  - Ascites [None]
  - Urinary tract infection [None]

NARRATIVE: CASE EVENT DATE: 20130425
